FAERS Safety Report 9444180 (Version 1)
Quarter: 2013Q3

REPORT INFORMATION
  Report Type: Spontaneous
  Country: US (occurrence: None)
  Receive Date: 20130806
  Receipt Date: 20130806
  Transmission Date: 20140515
  Serious: Yes (Other)
  Sender: FDA-Public Use
  Company Number: None

PATIENT
  Age: 49 Year
  Sex: Female
  Weight: 55.34 kg

DRUGS (1)
  1. ALVESCO [Suspect]
     Indication: ASTHMA
     Dosage: 2 PILLS IN THE MORNING AND EVENING EVERY DAY?FEW YEARS

REACTIONS (4)
  - Dyspnoea [None]
  - Cough [None]
  - Drug ineffective [None]
  - Product substitution issue [None]
